FAERS Safety Report 21797518 (Version 3)
Quarter: 2023Q1

REPORT INFORMATION
  Report Type: Spontaneous
  Country: US (occurrence: US)
  Receive Date: 20221230
  Receipt Date: 20230327
  Transmission Date: 20230418
  Serious: No
  Sender: FDA-Public Use
  Company Number: US-VIIV HEALTHCARE LIMITED-US2022AMR191181

PATIENT
  Age: 42 Year
  Sex: Male

DRUGS (2)
  1. RILPIVIRINE [Suspect]
     Active Substance: RILPIVIRINE
     Indication: Product used for unknown indication
     Dosage: UNK, 600MG/900 MG
     Route: 065
     Dates: start: 20220727
  2. CABOTEGRAVIR [Suspect]
     Active Substance: CABOTEGRAVIR
     Indication: Product used for unknown indication
     Dosage: UNK, 600MG/900 MG
     Route: 065
     Dates: start: 20220727

REACTIONS (4)
  - Product dose omission issue [Unknown]
  - Panic attack [Unknown]
  - Anxiety [Unknown]
  - Product dispensing issue [Unknown]
